FAERS Safety Report 6659899-0 (Version None)
Quarter: 2010Q1

REPORT INFORMATION
  Report Type: 
  Country: None (occurrence: None)
  Receive Date: 20100330
  Receipt Date: 20100330
  Transmission Date: 20100710
  Serious: Yes (Hospitalization)
  Sender: FDA-Public Use
  Company Number: None

PATIENT
  Age: 70 Year
  Sex: Male
  Weight: 69.39 kg

DRUGS (15)
  1. PRASUGREL 10 MG ELI LILLY [Suspect]
     Indication: AORTIC VALVE REPLACEMENT
     Dates: start: 20091202, end: 20100315
  2. PRASUGREL 10 MG ELI LILLY [Suspect]
     Indication: CORONARY ARTERY DISEASE
     Dates: start: 20091202, end: 20100315
  3. PRASUGREL 10 MG ELI LILLY [Suspect]
     Indication: PERCUTANEOUS CORONARY INTERVENTION
     Dates: start: 20091202, end: 20100315
  4. ASPIRIN [Concomitant]
  5. WARFARIN SODIUM [Concomitant]
  6. LISINOPRIL [Concomitant]
  7. FAMOTIDINE [Concomitant]
  8. REGULAR INSULIN [Concomitant]
  9. ATORVASTATIN CALCIUM [Concomitant]
  10. FERROUS SULFATE TAB [Concomitant]
  11. HTCZ [Concomitant]
  12. CARVEDILOL [Concomitant]
  13. TAMSULOSIN HCL [Concomitant]
  14. MANANTINE [Concomitant]
  15. ACETAMINOPHEN [Concomitant]

REACTIONS (4)
  - BENIGN PROSTATIC HYPERPLASIA [None]
  - CONFUSIONAL STATE [None]
  - HAEMATURIA [None]
  - INTERNATIONAL NORMALISED RATIO INCREASED [None]
